FAERS Safety Report 22882548 (Version 2)
Quarter: 2023Q4

REPORT INFORMATION
  Report Type: Spontaneous
  Country: US (occurrence: US)
  Receive Date: 20230830
  Receipt Date: 20231006
  Transmission Date: 20240109
  Serious: No
  Sender: FDA-Public Use
  Company Number: US-BEH-2023162467

PATIENT
  Age: 51 Year
  Sex: Female
  Weight: 108.84 kg

DRUGS (2)
  1. HIZENTRA [Suspect]
     Active Substance: HUMAN IMMUNOGLOBULIN G
     Indication: Immunodeficiency common variable
     Dosage: 12 GRAM, QW
     Route: 058
  2. HIZENTRA [Suspect]
     Active Substance: HUMAN IMMUNOGLOBULIN G
     Indication: Primary immunodeficiency syndrome
     Dosage: 12 GRAM, QW
     Route: 058
     Dates: start: 2023

REACTIONS (8)
  - Herpes zoster [Unknown]
  - Headache [Unknown]
  - Dizziness [Unknown]
  - Infusion site swelling [Unknown]
  - Psychiatric symptom [Unknown]
  - No adverse event [Unknown]
  - Therapy interrupted [Unknown]
  - Sick relative [Unknown]

NARRATIVE: CASE EVENT DATE: 20230701
